FAERS Safety Report 4432737-2 (Version None)
Quarter: 2004Q3

REPORT INFORMATION
  Report Type: 
  Country: None (occurrence: None)
  Receive Date: 20040820
  Receipt Date: 20040730
  Transmission Date: 20050211
  Serious: Yes (Life-Threatening, Hospitalization, Other)
  Sender: FDA-Public Use
  Company Number: GBS040715289

PATIENT
  Age: 36 Week
  Sex: Male
  Weight: 3 kg

DRUGS (4)
  1. FLUOXETINE [Suspect]
  2. TRIMETHOPRIM [Concomitant]
  3. HUMAN ACTRAPID (INSULIN HUMAN) [Concomitant]
  4. INSULATARD NPH HUMAN [Concomitant]

REACTIONS (7)
  - DRUG EXPOSURE DURING PREGNANCY [None]
  - DRUG EXPOSURE VIA BREAST MILK [None]
  - HYPOGLYCAEMIA NEONATAL [None]
  - INTRAVENTRICULAR HAEMORRHAGE NEONATAL [None]
  - IRRITABILITY [None]
  - NEONATAL DISORDER [None]
  - PREMATURE BABY [None]
